FAERS Safety Report 17656109 (Version 7)
Quarter: 2020Q4

REPORT INFORMATION
  Report Type: Spontaneous
  Country: US (occurrence: US)
  Receive Date: 20200410
  Receipt Date: 20201109
  Transmission Date: 20210113
  Serious: Yes (Hospitalization)
  Sender: FDA-Public Use
  Company Number: US-KARYOPHARM-2020KPT000290

PATIENT

DRUGS (9)
  1. XPOVIO [Suspect]
     Active Substance: SELINEXOR
     Dosage: 40 MG ON DAYS 1, 8, 15
     Route: 048
     Dates: start: 202005, end: 202006
  2. XPOVIO [Suspect]
     Active Substance: SELINEXOR
     Dosage: 40 MG ON DAYS 1, 8, 15
     Dates: start: 202008, end: 202008
  3. XPOVIO [Suspect]
     Active Substance: SELINEXOR
     Indication: PLASMA CELL MYELOMA
     Dosage: 60 MG ON DAYS 1,8,15
     Route: 048
     Dates: start: 20200311
  4. DEXAMETHASONE. [Concomitant]
     Active Substance: DEXAMETHASONE
     Indication: PRODUCT USED FOR UNKNOWN INDICATION
     Dosage: 40 MG, WEEKLY
  5. KYPROLIS [Concomitant]
     Active Substance: CARFILZOMIB
     Indication: PRODUCT USED FOR UNKNOWN INDICATION
     Dosage: UNK
     Route: 042
  6. ZOFRAN [Concomitant]
     Active Substance: ONDANSETRON HYDROCHLORIDE
     Indication: PRODUCT USED FOR UNKNOWN INDICATION
     Dosage: UNK
  7. IMODIUM [Concomitant]
     Active Substance: LOPERAMIDE HYDROCHLORIDE
     Indication: DIARRHOEA
  8. XPOVIO [Suspect]
     Active Substance: SELINEXOR
     Dosage: 40 MG ON DAYS 1, 8, 15
     Route: 048
     Dates: start: 202006, end: 20200729
  9. XPOVIO [Suspect]
     Active Substance: SELINEXOR
     Dosage: 40 MG, WEEKLY
     Route: 048
     Dates: end: 202010

REACTIONS (13)
  - Abdominal discomfort [Unknown]
  - Drug ineffective [Unknown]
  - Cystitis [Unknown]
  - Thrombocytopenia [Unknown]
  - Blood calcium increased [Unknown]
  - Laboratory test abnormal [Unknown]
  - Anaemia [Not Recovered/Not Resolved]
  - Nausea [Unknown]
  - Decreased appetite [Recovered/Resolved]
  - Diarrhoea [Recovered/Resolved]
  - Hypomagnesaemia [Unknown]
  - Hypokalaemia [Unknown]
  - Fatigue [Unknown]

NARRATIVE: CASE EVENT DATE: 2020
